FAERS Safety Report 4562259-X (Version None)
Quarter: 2005Q1

REPORT INFORMATION
  Report Type: 
  Country: None (occurrence: None)
  Receive Date: 20050121
  Receipt Date: 20050117
  Transmission Date: 20050727
  Serious: Yes (Death)
  Sender: FDA-Public Use
  Company Number: HQ6752204OCT2001

PATIENT
  Age: 11 Year
  Sex: Female

DRUGS (3)
  1. DIMETAPP [Suspect]
     Dosage: ORAL
     Route: 048
  2. ROTIBUSSIN CF (GUAIFENESIN/DEXTROMETHORPHAN/PHENYLPROPANOLAMINE, SYRUP [Suspect]
     Dosage: ORAL
     Route: 048
  3. TRIAMINIC SRT [Suspect]
     Dosage: 1/4 TEASPOON 3 TIMES A DAY, ORAL
     Route: 048
     Dates: start: 19901028

REACTIONS (18)
  - AGITATION [None]
  - ANXIETY DISORDER [None]
  - APNOEA [None]
  - BODY TEMPERATURE DECREASED [None]
  - BRAIN HERNIATION [None]
  - CEREBRAL HAEMORRHAGE [None]
  - COMA [None]
  - FEAR [None]
  - HAEMORRHAGE INTRACRANIAL [None]
  - HEADACHE [None]
  - HEART RATE DECREASED [None]
  - HYPOTENSION [None]
  - HYPOTONIA [None]
  - HYPOVENTILATION [None]
  - LEUKOCYTOSIS [None]
  - LOSS OF CONSCIOUSNESS [None]
  - MIOSIS [None]
  - PUPIL FIXED [None]
